FAERS Safety Report 7955301-7 (Version None)
Quarter: 2011Q4

REPORT INFORMATION
  Report Type: 
  Country: None (occurrence: None)
  Receive Date: 20111202
  Receipt Date: 20111201
  Transmission Date: 20120403
  Serious: Yes (Hospitalization, Other)
  Sender: FDA-Public Use
  Company Number: CA-PURDUE-CAN-2011-0002432

PATIENT
  Sex: Female

DRUGS (5)
  1. OXYCONTIN [Suspect]
     Route: 042
  2. MARIJUANA [Suspect]
     Indication: PRODUCT USED FOR UNKNOWN INDICATION
     Route: 055
  3. COCAINE [Suspect]
     Route: 042
  4. OXYCONTIN [Suspect]
     Indication: PRODUCT USED FOR UNKNOWN INDICATION
     Route: 002
  5. COCAINE [Suspect]
     Indication: PRODUCT USED FOR UNKNOWN INDICATION
     Route: 055

REACTIONS (4)
  - PSYCHOTIC DISORDER [None]
  - SUBSTANCE ABUSE [None]
  - DRUG DEPENDENCE [None]
  - OVERDOSE [None]
